FAERS Safety Report 6410507-3 (Version None)
Quarter: 2009Q4

REPORT INFORMATION
  Report Type: 
  Country: None (occurrence: None)
  Receive Date: 20091022
  Receipt Date: 20091016
  Transmission Date: 20100525
  Serious: Yes (Other)
  Sender: FDA-Public Use
  Company Number: GB-TEVA-212657ISR

PATIENT
  Sex: Female

DRUGS (2)
  1. SODIUM CHLORIDE [Suspect]
     Indication: MEDICATION DILUTION
     Route: 042
     Dates: start: 20090101, end: 20090101
  2. VINORELBINE [Suspect]
     Indication: BREAST CANCER
     Route: 042
     Dates: start: 20090101, end: 20090101

REACTIONS (2)
  - DYSPNOEA [None]
  - MALAISE [None]
